FAERS Safety Report 24756773 (Version 5)
Quarter: 2025Q1

REPORT INFORMATION
  Report Type: Spontaneous
  Country: PL (occurrence: PL)
  Receive Date: 20241220
  Receipt Date: 20250212
  Transmission Date: 20250409
  Serious: Yes (Hospitalization, Other)
  Sender: AUROBINDO
  Company Number: PL-ZENTIVA-2024-ZT-013445

PATIENT
  Age: 38 Year
  Sex: Male

DRUGS (7)
  1. BISOPROLOL [Suspect]
     Active Substance: BISOPROLOL
     Indication: Hypertension
     Route: 065
  2. BISOPROLOL [Suspect]
     Active Substance: BISOPROLOL
     Indication: Acute myocardial infarction
  3. OPIPRAMOL [Concomitant]
     Active Substance: OPIPRAMOL
     Indication: Anxiety disorder
     Route: 065
  4. OPIPRAMOL [Concomitant]
     Active Substance: OPIPRAMOL
     Indication: Acute myocardial infarction
  5. TICAGRELOR [Concomitant]
     Active Substance: TICAGRELOR
     Indication: Acute myocardial infarction
     Route: 065
  6. ASPIRIN [Concomitant]
     Active Substance: ASPIRIN
     Indication: Acute myocardial infarction
     Route: 065
  7. HEPARIN [Concomitant]
     Active Substance: HEPARIN SODIUM
     Indication: Acute myocardial infarction
     Route: 065

REACTIONS (7)
  - Prinzmetal angina [Recovered/Resolved]
  - Acute myocardial infarction [Recovered/Resolved]
  - Chest pain [Recovered/Resolved]
  - Vasoconstriction [Unknown]
  - Vasospasm [Recovered/Resolved]
  - Troponin I increased [Recovered/Resolved]
  - Arterial spasm [Recovered/Resolved]
